FAERS Safety Report 5478602-3 (Version None)
Quarter: 2007Q4

REPORT INFORMATION
  Report Type: 
  Country: None (occurrence: None)
  Receive Date: 20071005
  Receipt Date: 20070926
  Transmission Date: 20080405
  Serious: Yes (Other)
  Sender: FDA-Public Use
  Company Number: GB-ABBOTT-07P-167-0418397-00

PATIENT
  Age: 52 Year
  Sex: Male

DRUGS (3)
  1. EPILIM [Suspect]
     Indication: EPILEPSY
  2. EPILIM [Suspect]
  3. TOPIRAMATE [Interacting]
     Indication: EPILEPSY
     Dates: end: 20061101

REACTIONS (9)
  - ANOREXIA [None]
  - COGNITIVE DISORDER [None]
  - COORDINATION ABNORMAL [None]
  - DRUG INTERACTION [None]
  - ENCEPHALOPATHY [None]
  - HYPERAMMONAEMIA [None]
  - IRRITABILITY [None]
  - MALAISE [None]
  - METABOLIC ENCEPHALOPATHY [None]
